FAERS Safety Report 4475203-0 (Version None)
Quarter: 2004Q3

REPORT INFORMATION
  Report Type: 
  Country: None (occurrence: None)
  Receive Date: 20040923
  Receipt Date: 20040816
  Transmission Date: 20050211
  Serious: No
  Sender: FDA-Public Use
  Company Number: USA040771967

PATIENT
  Age: 60 Year
  Sex: Female

DRUGS (2)
  1. FORTEO [Suspect]
     Indication: OSTEOPOROSIS
     Dates: start: 20040625
  2. CALCIUM [Concomitant]

REACTIONS (3)
  - ARTHRALGIA [None]
  - CHEST PAIN [None]
  - PAINFUL RESPIRATION [None]
